FAERS Safety Report 8678102 (Version 22)
Quarter: 2015Q1

REPORT INFORMATION
  Report Type: Report from Study
  Country: CA (occurrence: CA)
  Receive Date: 20120723
  Receipt Date: 20150320
  Transmission Date: 20150721
  Serious: Yes (Hospitalization, Other)
  Sender: FDA-Public Use
  Company Number: CA-ASTRAZENECA-2012SE48671

PATIENT
  Age: 18567 Day
  Sex: Female
  Weight: 75.8 kg

DRUGS (105)
  1. CAPRELSA [Interacting]
     Active Substance: VANDETANIB
     Indication: MEDULLARY THYROID CANCER
     Route: 048
     Dates: start: 20120727, end: 20120823
  2. CYCLOBENZAPRINE [Concomitant]
     Active Substance: CYCLOBENZAPRINE
  3. TRAZODONE [Concomitant]
     Active Substance: TRAZODONE HYDROCHLORIDE
     Route: 048
  4. APO-CYCLOBENZAPRINE [Concomitant]
     Active Substance: CYCLOBENZAPRINE
     Dosage: 10 MG TWICE DAILY AS NEEDED
  5. APO-FUROSEMIDE [Concomitant]
  6. SPIRIVA [Concomitant]
     Active Substance: TIOTROPIUM BROMIDE MONOHYDRATE
  7. ACETAMINOPHEN + CODEINE [Concomitant]
  8. PRISTIQ EXTENDED RELEASE [Concomitant]
     Active Substance: DESVENLAFAXINE SUCCINATE
     Dosage: 100 MG AC
     Route: 048
  9. PROCHLORAZINE [Concomitant]
     Dosage: 5 MG TID PRN
     Route: 048
  10. ANTIHISTAMIC DRUGS [Concomitant]
  11. PSEUDOEPHEDRINE [Concomitant]
     Active Substance: PSEUDOEPHEDRINE
  12. TECTA [Concomitant]
     Active Substance: PANTOPRAZOLE MAGNESIUM
     Route: 048
  13. LAMISIL [Concomitant]
     Active Substance: TERBINAFINE HYDROCHLORIDE
  14. CAPRELSA [Suspect]
     Active Substance: VANDETANIB
     Indication: MEDULLARY THYROID CANCER
     Route: 048
     Dates: start: 20120618, end: 20120703
  15. CAPRELSA [Interacting]
     Active Substance: VANDETANIB
     Indication: MEDULLARY THYROID CANCER
     Route: 048
     Dates: start: 20120618, end: 20130906
  16. CAPRELSA [Interacting]
     Active Substance: VANDETANIB
     Indication: MEDULLARY THYROID CANCER
     Route: 048
     Dates: start: 20150226
  17. VENLAFAXINE XR [Interacting]
     Active Substance: VENLAFAXINE HYDROCHLORIDE
     Indication: ANTIDEPRESSANT THERAPY
     Route: 048
  18. AMITRIPTYLINE HCL [Concomitant]
     Active Substance: AMITRIPTYLINE
  19. TYLENOL WITH CODEINE [Concomitant]
     Active Substance: ACETAMINOPHEN\CODEINE PHOSPHATE
  20. ROBAXACET [Concomitant]
     Active Substance: ACETAMINOPHEN\METHOCARBAMOL
  21. SPIRONOLACTONE. [Concomitant]
     Active Substance: SPIRONOLACTONE
  22. PANTOPRAZOLE [Concomitant]
     Active Substance: PANTOPRAZOLE SODIUM
  23. DULCOLAX [Concomitant]
     Active Substance: BISACODYL OR DOCUSATE SODIUM
     Dosage: PRN
  24. ELAVIL [Concomitant]
     Active Substance: AMITRIPTYLINE HYDROCHLORIDE
  25. EFFEXOR [Concomitant]
     Active Substance: VENLAFAXINE HYDROCHLORIDE
  26. CALCIUM CARBONATE. [Concomitant]
     Active Substance: CALCIUM CARBONATE
  27. POTASSIUM [Concomitant]
     Active Substance: POTASSIUM
     Route: 048
  28. AVELOX [Concomitant]
     Active Substance: MOXIFLOXACIN HYDROCHLORIDE
     Indication: PNEUMONIA
     Route: 048
  29. CAPRELSA [Interacting]
     Active Substance: VANDETANIB
     Indication: MEDULLARY THYROID CANCER
     Route: 048
     Dates: start: 20120918
  30. CAPRELSA [Interacting]
     Active Substance: VANDETANIB
     Indication: MEDULLARY THYROID CANCER
     Route: 048
     Dates: start: 20140106
  31. CAPRELSA [Interacting]
     Active Substance: VANDETANIB
     Indication: MEDULLARY THYROID CANCER
     Route: 048
     Dates: end: 20150212
  32. NAROPIN [Interacting]
     Active Substance: ROPIVACAINE HYDROCHLORIDE
  33. VENLAFAXINE XR [Interacting]
     Active Substance: VENLAFAXINE HYDROCHLORIDE
     Indication: ANTIDEPRESSANT THERAPY
     Route: 048
  34. RATIO-TRYPTOPHAN [Concomitant]
  35. IMOVANE [Concomitant]
     Active Substance: ZOPICLONE
  36. APO-FUROSEMIDE [Concomitant]
  37. ELTROXIN [Concomitant]
     Active Substance: LEVOTHYROXINE
  38. CLINDAMYCIN [Concomitant]
     Active Substance: CLINDAMYCIN\CLINDAMYCIN PHOSPHATE
  39. LYRICA [Concomitant]
     Active Substance: PREGABALIN
     Route: 048
  40. STEMETIL [Concomitant]
     Active Substance: PROCHLORPERAZINE MALEATE
     Dates: start: 20121102
  41. EFFEXOR [Concomitant]
     Active Substance: VENLAFAXINE HYDROCHLORIDE
  42. MAGNESIUM [Concomitant]
     Active Substance: MAGNESIUM
     Route: 048
  43. SYNTHROID [Concomitant]
     Active Substance: LEVOTHYROXINE SODIUM
  44. L-TRYPTOPHAN [Concomitant]
     Active Substance: TRYPTOPHAN
  45. SULFAMETHOXAZOLE/TRIMETHOPRIN [Concomitant]
     Indication: PNEUMONIA
     Dosage: 400/80 MG BID
  46. RIZATRIPTAN BENZOATE. [Concomitant]
     Active Substance: RIZATRIPTAN BENZOATE
  47. TRYPTOPHAN [Concomitant]
     Active Substance: TRYPTOPHAN
     Dosage: 1 GAM, 2 TABS QHS
  48. FUCIDIN [Concomitant]
     Active Substance: FUSIDIC ACID
     Route: 061
  49. CAPRELSA [Interacting]
     Active Substance: VANDETANIB
     Indication: MEDULLARY THYROID CANCER
     Route: 048
     Dates: start: 20120618, end: 20121109
  50. CAPRELSA [Interacting]
     Active Substance: VANDETANIB
     Indication: MEDULLARY THYROID CANCER
     Route: 048
     Dates: start: 20120618, end: 20140328
  51. VENLAFAXINE XR [Interacting]
     Active Substance: VENLAFAXINE HYDROCHLORIDE
     Indication: ANTIDEPRESSANT THERAPY
     Route: 048
  52. MAXALT [Concomitant]
     Active Substance: RIZATRIPTAN BENZOATE
  53. IMOVANE [Concomitant]
     Active Substance: ZOPICLONE
  54. PROCHLORPERAZINE. [Concomitant]
     Active Substance: PROCHLORPERAZINE
     Dosage: 10 MG 3 TIMES PER DAY AS NEEDED
  55. VITAMIN B12 [Concomitant]
     Active Substance: CYANOCOBALAMIN
  56. TYLENOL WITH CODEINE [Concomitant]
     Active Substance: ACETAMINOPHEN\CODEINE PHOSPHATE
  57. MAGNESIUM [Concomitant]
     Active Substance: MAGNESIUM
     Route: 048
  58. VITAMIN D3 [Concomitant]
     Active Substance: CHOLECALCIFEROL
     Route: 048
  59. CALCIUM [Concomitant]
     Active Substance: CALCIUM
     Route: 048
  60. OXYCODONE [Concomitant]
     Active Substance: OXYCODONE
  61. ADVAIR HFA [Concomitant]
     Active Substance: FLUTICASONE PROPIONATE\SALMETEROL XINAFOATE
  62. CAPRELSA [Interacting]
     Active Substance: VANDETANIB
     Indication: MEDULLARY THYROID CANCER
     Route: 048
     Dates: start: 20120618, end: 20130712
  63. IMOVANE [Concomitant]
     Active Substance: ZOPICLONE
  64. OXYNEO [Concomitant]
     Active Substance: OXYCODONE
  65. ATENOLOL. [Concomitant]
     Active Substance: ATENOLOL
     Dates: end: 20121102
  66. BENADRYL [Concomitant]
     Active Substance: DIPHENHYDRAMINE HYDROCHLORIDE
  67. FOLIC ACID. [Concomitant]
     Active Substance: FOLIC ACID
  68. CODEINE [Concomitant]
     Active Substance: CODEINE
  69. CYANOCOBALAMIN. [Concomitant]
     Active Substance: CYANOCOBALAMIN
  70. PREGABALIN. [Concomitant]
     Active Substance: PREGABALIN
     Route: 048
  71. SALBUTAMOL [Concomitant]
     Active Substance: ALBUTEROL
  72. CAPRELSA [Interacting]
     Active Substance: VANDETANIB
     Indication: MEDULLARY THYROID CANCER
     Route: 048
     Dates: start: 20121123, end: 20130219
  73. CAPRELSA [Interacting]
     Active Substance: VANDETANIB
     Indication: MEDULLARY THYROID CANCER
     Route: 048
     Dates: start: 20141102
  74. SEROQUEL [Interacting]
     Active Substance: QUETIAPINE FUMARATE
     Indication: MENTAL DISORDER
     Route: 048
  75. IMOVANE [Concomitant]
     Active Substance: ZOPICLONE
  76. TYLENOL WITH CODEINE [Concomitant]
     Active Substance: ACETAMINOPHEN\CODEINE PHOSPHATE
  77. TYLENOL WITH CODEINE [Concomitant]
     Active Substance: ACETAMINOPHEN\CODEINE PHOSPHATE
  78. OXYNEO [Concomitant]
     Active Substance: OXYCODONE
     Dates: start: 20121130
  79. STEMETIL [Concomitant]
     Active Substance: PROCHLORPERAZINE MALEATE
     Dosage: PRN
  80. ATROVENT [Concomitant]
     Active Substance: IPRATROPIUM BROMIDE
  81. CAPRELSA [Interacting]
     Active Substance: VANDETANIB
     Indication: MEDULLARY THYROID CANCER
     Route: 048
     Dates: start: 201210
  82. CAPRELSA [Interacting]
     Active Substance: VANDETANIB
     Indication: MEDULLARY THYROID CANCER
     Route: 048
     Dates: start: 20120618, end: 20130920
  83. SYMBICORT [Interacting]
     Active Substance: BUDESONIDE\FORMOTEROL FUMARATE DIHYDRATE
     Dosage: 200 MCG 2 PUFFS, BID
     Route: 055
  84. NAROPIN [Interacting]
     Active Substance: ROPIVACAINE HYDROCHLORIDE
     Route: 051
  85. DEPO-MEDROL [Concomitant]
     Active Substance: METHYLPREDNISOLONE ACETATE
  86. DEPO-MEDROL [Concomitant]
     Active Substance: METHYLPREDNISOLONE ACETATE
     Route: 014
  87. BOTOX [Concomitant]
     Active Substance: ONABOTULINUMTOXINA
     Dosage: EVERY THREE MONTHS
     Route: 030
  88. OXYNEO [Concomitant]
     Active Substance: OXYCODONE
  89. APO-FUROSEMIDE [Concomitant]
  90. VENTOLIN [Concomitant]
     Active Substance: ALBUTEROL SULFATE
     Dosage: 100 MCG DAILY AS NEEDED
     Dates: end: 20121102
  91. BENADRYL [Concomitant]
     Active Substance: DIPHENHYDRAMINE HYDROCHLORIDE
  92. FUSIDIC ACID [Concomitant]
     Active Substance: FUSIDIC ACID
  93. ALLEGRA [Concomitant]
     Active Substance: FEXOFENADINE HYDROCHLORIDE
     Dosage: PRN
  94. CAPRELSA [Interacting]
     Active Substance: VANDETANIB
     Indication: MEDULLARY THYROID CANCER
     Route: 048
     Dates: end: 20130328
  95. CAPRELSA [Interacting]
     Active Substance: VANDETANIB
     Indication: MEDULLARY THYROID CANCER
     Route: 048
     Dates: start: 20120618
  96. SEROQUEL [Interacting]
     Active Substance: QUETIAPINE FUMARATE
     Indication: MENTAL DISORDER
     Route: 048
  97. PROCHLORPERAZINE. [Concomitant]
     Active Substance: PROCHLORPERAZINE
     Dosage: 5 MG 3 TIMES PER DAY AS NEEDED
  98. PROCHLORPERAZINE. [Concomitant]
     Active Substance: PROCHLORPERAZINE
     Dosage: 5 PM, AS REQUIRED
     Route: 048
  99. APO-FUROSEMIDE [Concomitant]
  100. ALLERGY INJECTION [Concomitant]
     Active Substance: UNSPECIFIED INGREDIENT
     Dosage: EVERY MONTH
  101. ROBAXACET [Concomitant]
     Active Substance: ACETAMINOPHEN\METHOCARBAMOL
  102. TRIPROLIDINE, PSEUDOEPHEDRINE [Concomitant]
  103. EFFEXOR [Concomitant]
     Active Substance: VENLAFAXINE HYDROCHLORIDE
     Dosage: 150 MG
  104. ALLEGRA [Concomitant]
     Active Substance: FEXOFENADINE HYDROCHLORIDE
  105. FUROSEMIDE. [Concomitant]
     Active Substance: FUROSEMIDE
     Dosage: 40 MG QAM

REACTIONS (21)
  - Oropharyngeal pain [Not Recovered/Not Resolved]
  - Pneumonia [Not Recovered/Not Resolved]
  - Fall [Not Recovered/Not Resolved]
  - Impaired healing [Not Recovered/Not Resolved]
  - Musculoskeletal pain [Not Recovered/Not Resolved]
  - Breast abscess [Recovering/Resolving]
  - Cough [Not Recovered/Not Resolved]
  - Fatigue [Not Recovered/Not Resolved]
  - Nausea [Not Recovered/Not Resolved]
  - Wound infection [Not Recovered/Not Resolved]
  - Electrocardiogram QT prolonged [Not Recovered/Not Resolved]
  - Neck pain [Not Recovered/Not Resolved]
  - Abdominal pain upper [Not Recovered/Not Resolved]
  - Drug interaction [Recovered/Resolved]
  - Nasopharyngitis [Not Recovered/Not Resolved]
  - Electrocardiogram abnormal [Recovered/Resolved]
  - Sinusitis [Recovered/Resolved]
  - Back pain [Not Recovered/Not Resolved]
  - Lower respiratory tract infection [Not Recovered/Not Resolved]
  - Rash [Recovering/Resolving]
  - Pain [Unknown]

NARRATIVE: CASE EVENT DATE: 20120703
